FAERS Safety Report 6811296-0 (Version None)
Quarter: 2010Q2

REPORT INFORMATION
  Report Type: 
  Country: None (occurrence: None)
  Receive Date: 20100630
  Receipt Date: 20100113
  Transmission Date: 20101027
  Serious: No
  Sender: FDA-Public Use
  Company Number: US-AMGEN-KDL385792

PATIENT
  Sex: Female
  Weight: 66.3 kg

DRUGS (7)
  1. PROCRIT [Suspect]
     Indication: ANAEMIA
     Dates: start: 20090504
  2. FOLIC ACID [Concomitant]
     Route: 048
     Dates: start: 20090501
  3. VITAMIN B-12 [Concomitant]
     Route: 042
     Dates: start: 20090501
  4. IRON [Concomitant]
     Route: 042
     Dates: start: 20090820
  5. HERCEPTIN [Concomitant]
     Dates: start: 20100113
  6. PACLITAXEL [Concomitant]
     Dates: start: 20090806, end: 20090820
  7. TYKERB [ INGREDIENT UNKNOWN ] [Concomitant]
     Route: 048
     Dates: start: 20090918

REACTIONS (2)
  - HAEMOGLOBIN DECREASED [None]
  - SERUM FERRITIN DECREASED [None]
